FAERS Safety Report 16698136 (Version 1)
Quarter: 2019Q3

REPORT INFORMATION
  Report Type: Spontaneous
  Country: DE (occurrence: DE)
  Receive Date: 20190813
  Receipt Date: 20190813
  Transmission Date: 20191004
  Serious: Yes (Other)
  Sender: FDA-Public Use
  Company Number: DE-PROVELL PHARMACEUTICALS-2073086

PATIENT
  Sex: Female

DRUGS (1)
  1. EUTHYROX [Suspect]
     Active Substance: LEVOTHYROXINE SODIUM
     Indication: PRODUCT USED FOR UNKNOWN INDICATION
     Dates: start: 20190801

REACTIONS (5)
  - Hypertension [None]
  - Feeling abnormal [None]
  - Heart rate increased [None]
  - Palpitations [Recovering/Resolving]
  - Asthenia [None]

NARRATIVE: CASE EVENT DATE: 20190801
